FAERS Safety Report 9605609 (Version 2)
Quarter: 2014Q2

REPORT INFORMATION
  Report Type: Spontaneous
  Country: US (occurrence: US)
  Receive Date: 20131008
  Receipt Date: 20140404
  Transmission Date: 20141212
  Serious: Yes (Death, Other)
  Sender: FDA-Public Use
  Company Number: US-B.I. PHARMACEUTICALS,INC./RIDGEFIELD-2013-BI-31558BP

PATIENT
  Age: 65 Year
  Sex: Male
  Weight: 75.3 kg

DRUGS (14)
  1. PRADAXA [Suspect]
     Indication: ATRIAL FIBRILLATION
     Dosage: 300 MG
     Route: 048
     Dates: start: 20111005, end: 20111008
  2. TOPROL XL [Concomitant]
     Dosage: 50 MG
     Route: 048
  3. VITAMIN D [Concomitant]
     Dosage: 2000 U
     Route: 048
  4. LEVAQUIN [Concomitant]
     Route: 042
  5. DUONEB [Concomitant]
     Dosage: 12 ML
     Route: 055
  6. CORDARONE [Concomitant]
     Dosage: 900 MG
     Route: 042
  7. ZOSYN [Concomitant]
     Route: 065
  8. REMERON [Concomitant]
     Dosage: 30 MG
     Route: 048
  9. POTASSIUM CHLORIDE [Concomitant]
     Dosage: 25 MEQ
     Route: 065
  10. LOTENSIN [Concomitant]
     Dosage: 10 MG
     Route: 048
  11. AMIDATE [Concomitant]
     Dosage: 20 MG
     Route: 042
  12. TYLENOL [Concomitant]
     Route: 048
  13. MILK OF MAGNESIA [Concomitant]
     Route: 048
  14. HUMULIN R [Concomitant]
     Route: 065

REACTIONS (2)
  - Upper gastrointestinal haemorrhage [Fatal]
  - Haemorrhagic anaemia [Unknown]
